FAERS Safety Report 23478118 (Version 1)
Quarter: 2024Q1

REPORT INFORMATION
  Report Type: Report from Study
  Country: US (occurrence: US)
  Receive Date: 20240204
  Receipt Date: 20240204
  Transmission Date: 20240410
  Serious: No
  Sender: FDA-Public Use
  Company Number: US-EXELIXIS-CABO-23069113

PATIENT
  Age: 80 Year
  Sex: Female

DRUGS (28)
  1. CABOMETYX [Suspect]
     Active Substance: CABOZANTINIB S-MALATE
     Indication: Clear cell renal cell carcinoma
     Dosage: 60 MG, QD
     Route: 048
     Dates: start: 20230922, end: 20231009
  2. ZOFRAN [Concomitant]
     Active Substance: ONDANSETRON HYDROCHLORIDE
  3. ALENDRONATE [Concomitant]
     Active Substance: ALENDRONATE SODIUM
  4. AMLODIPINE [Concomitant]
     Active Substance: AMLODIPINE BESYLATE
  5. BACLOFEN [Concomitant]
     Active Substance: BACLOFEN
  6. CALCIUM CITRATE [Concomitant]
     Active Substance: CALCIUM CITRATE
  7. DIPHENHYDRAMINE [Concomitant]
     Active Substance: DIPHENHYDRAMINE
  8. FAMOTIDINE [Concomitant]
     Active Substance: FAMOTIDINE
  9. FISH OIL [Concomitant]
     Active Substance: FISH OIL
  10. FUROSEMIDE [Concomitant]
     Active Substance: FUROSEMIDE
  11. GABAPENTIN [Concomitant]
     Active Substance: GABAPENTIN
  12. GUAIFENESIN [Concomitant]
     Active Substance: GUAIFENESIN
  13. HEPARIN SODIUM [Concomitant]
     Active Substance: HEPARIN SODIUM
  14. ACETAMINOPHEN\HYDROCODONE [Concomitant]
     Active Substance: ACETAMINOPHEN\HYDROCODONE
  15. MINERALS\VITAMINS [Concomitant]
     Active Substance: MINERALS\VITAMINS
  16. MINERALS\VITAMINS [Concomitant]
     Active Substance: MINERALS\VITAMINS
  17. LEVOTHYROXINE [Concomitant]
     Active Substance: LEVOTHYROXINE\LEVOTHYROXINE SODIUM
  18. LOPREEZA [Concomitant]
     Active Substance: ESTRADIOL\NORETHINDRONE ACETATE
  19. LORAZEPAM [Concomitant]
     Active Substance: LORAZEPAM
  20. METOPROLOL SUCCINATE [Concomitant]
     Active Substance: METOPROLOL SUCCINATE
  21. MIRALAX [Concomitant]
     Active Substance: POLYETHYLENE GLYCOL 3350
  22. VITAMINS [Concomitant]
     Active Substance: VITAMINS
  23. POLYETHYLENE GLYCOL 3350 [Concomitant]
     Active Substance: POLYETHYLENE GLYCOL 3350
  24. PREDNISONE [Concomitant]
     Active Substance: PREDNISONE
  25. PROMETHAZINE [Concomitant]
     Active Substance: PROMETHAZINE HYDROCHLORIDE
  26. VITAL D [Concomitant]
  27. VITAMIN C [Concomitant]
     Active Substance: ASCORBIC ACID
  28. VITAMIN D3 [Concomitant]
     Active Substance: CHOLECALCIFEROL

REACTIONS (17)
  - Dysphagia [Unknown]
  - Gastrointestinal motility disorder [Recovering/Resolving]
  - Hepatic enzyme increased [Recovering/Resolving]
  - Weight decreased [Unknown]
  - Nausea [Unknown]
  - Fatigue [Unknown]
  - Decreased appetite [Unknown]
  - Alopecia [Unknown]
  - Wheezing [Not Recovered/Not Resolved]
  - Cardiomegaly [Unknown]
  - Neck pain [Unknown]
  - Urinary tract infection [Unknown]
  - Skin ulcer [Unknown]
  - Peripheral swelling [Unknown]
  - Coronary artery disease [Unknown]
  - Dyspnoea exertional [Recovering/Resolving]
  - Bone pain [Unknown]

NARRATIVE: CASE EVENT DATE: 20230926
